FAERS Safety Report 13790866 (Version 1)
Quarter: 2017Q3

REPORT INFORMATION
  Report Type: Spontaneous
  Country: FR (occurrence: FR)
  Receive Date: 20170725
  Receipt Date: 20170725
  Transmission Date: 20171127
  Serious: Yes (Hospitalization)
  Sender: FDA-Public Use
  Company Number: FR-ASTRAZENECA-2017SE74909

PATIENT
  Age: 42 Year
  Sex: Male

DRUGS (11)
  1. METHADONE [Suspect]
     Active Substance: METHADONE HYDROCHLORIDE
     Indication: DRUG USE DISORDER
     Route: 048
     Dates: start: 201503, end: 20170501
  2. RENVELA [Concomitant]
     Active Substance: SEVELAMER CARBONATE
  3. PREZISTA [Concomitant]
     Active Substance: DARUNAVIR ETHANOLATE
  4. RENUTRYL [Concomitant]
     Dosage: 500
  5. INEXIUM [Suspect]
     Active Substance: ESOMEPRAZOLE
     Indication: CHRONIC GASTRITIS
     Route: 048
  6. COLCHICINE. [Concomitant]
     Active Substance: COLCHICINE
  7. EPIVIR [Concomitant]
     Active Substance: LAMIVUDINE
     Dosage: 10 MG / ML
  8. ZIAGEN [Concomitant]
     Active Substance: ABACAVIR SULFATE
  9. CALCIUM POLYSTYRENE SULFONATE [Concomitant]
     Active Substance: CALCIUM POLYSTYRENE SULFONATE
  10. RIMIFON [Interacting]
     Active Substance: ISONIAZID
     Indication: MYCOBACTERIUM TUBERCULOSIS COMPLEX TEST POSITIVE
     Route: 048
     Dates: start: 201704, end: 20170502
  11. NORVIR [Concomitant]
     Active Substance: RITONAVIR

REACTIONS (4)
  - Drug interaction [Unknown]
  - Somnolence [Recovered/Resolved]
  - Miosis [Recovered/Resolved]
  - Disturbance in attention [Recovered/Resolved]

NARRATIVE: CASE EVENT DATE: 201704
